FAERS Safety Report 9521862 (Version 1)
Quarter: 2013Q3

REPORT INFORMATION
  Report Type: Spontaneous
  Country: US (occurrence: US)
  Receive Date: 20130913
  Receipt Date: 20130913
  Transmission Date: 20140515
  Serious: Yes (Other)
  Sender: FDA-Public Use
  Company Number: US-ELI_LILLY_AND_COMPANY-US201309002475

PATIENT
  Sex: Male

DRUGS (4)
  1. HUMALOG LISPRO [Suspect]
     Indication: TYPE 1 DIABETES MELLITUS
     Dosage: 20 U, TID
  2. HUMALOG LISPRO [Suspect]
     Dosage: 15 U, BID
  3. HUMALOG LISPRO [Suspect]
     Dosage: 7 U, EACH EVENING
  4. LANTUS [Suspect]

REACTIONS (5)
  - Blindness [Not Recovered/Not Resolved]
  - Blood glucose increased [Unknown]
  - Bladder pain [Unknown]
  - Pollakiuria [Unknown]
  - Wrong drug administered [Unknown]
